FAERS Safety Report 10238168 (Version 1)
Quarter: 2014Q2

REPORT INFORMATION
  Report Type: Spontaneous
  Country: US (occurrence: None)
  Receive Date: 20140613
  Receipt Date: 20140613
  Transmission Date: 20141212
  Serious: Yes (Hospitalization, Other)
  Sender: FDA-Public Use
  Company Number: None

PATIENT
  Age: 62 Year
  Sex: Male

DRUGS (1)
  1. PREDNISONE [Suspect]
     Route: 048
     Dates: start: 20131226, end: 20131229

REACTIONS (1)
  - Leukocytosis [None]
